FAERS Safety Report 8616829 (Version 4)
Quarter: 2013Q3

REPORT INFORMATION
  Report Type: Report from Study
  Country: US (occurrence: US)
  Receive Date: 20120615
  Receipt Date: 20130923
  Transmission Date: 20140515
  Serious: Yes (Hospitalization)
  Sender: FDA-Public Use
  Company Number: PHEH2012US011592

PATIENT
  Age: 71 Year
  Sex: Male

DRUGS (3)
  1. GLEEVEC [Suspect]
     Indication: CHRONIC MYELOID LEUKAEMIA
     Dosage: 400 MG, DAILY
     Route: 048
     Dates: start: 20120124
  2. GLEEVEC [Suspect]
     Dosage: 400 MG, DAILY
     Route: 048
     Dates: start: 20120420
  3. GLEEVEC [Suspect]
     Dosage: 400 MG, QD
     Route: 048

REACTIONS (5)
  - Fall [Unknown]
  - Spinal fracture [Unknown]
  - Pain [Unknown]
  - Balance disorder [Unknown]
  - Dizziness [Unknown]
